FAERS Safety Report 4406790-6 (Version None)
Quarter: 2004Q3

REPORT INFORMATION
  Report Type: 
  Country: None (occurrence: None)
  Receive Date: 20040723
  Receipt Date: 20040617
  Transmission Date: 20050211
  Serious: Yes (Other)
  Sender: FDA-Public Use
  Company Number: JP-MERCK-0406USA01946

PATIENT
  Age: 74 Year
  Sex: Female

DRUGS (21)
  1. [THERAPY UNSPECIFIED] [Concomitant]
     Route: 065
     Dates: start: 20040613, end: 20040613
  2. [THERAPY UNSPECIFIED] [Concomitant]
     Route: 065
     Dates: start: 20040614, end: 20040616
  3. [THERAPY UNSPECIFIED] [Concomitant]
     Route: 065
     Dates: start: 20040613, end: 20040613
  4. [THERAPY UNSPECIFIED] [Concomitant]
     Route: 065
     Dates: start: 20040614, end: 20040614
  5. MUCOSOLVAN [Concomitant]
     Route: 048
     Dates: start: 20040613, end: 20040613
  6. AMINO ACIDS (UNSPECIFIED) AND CARBOHYDRATES (UNSPECIFIED) AND ELECTROL [Concomitant]
     Route: 065
     Dates: start: 20040613, end: 20040616
  7. DIGOXIN [Concomitant]
     Route: 065
     Dates: start: 20040614, end: 20040616
  8. RADICUT [Suspect]
     Indication: CEREBRAL INFARCTION
     Route: 041
     Dates: start: 20040614, end: 20040616
  9. PEPCID [Suspect]
     Indication: GASTRIC ULCER
     Route: 042
     Dates: start: 20040613, end: 20040616
  10. LASIX [Concomitant]
     Route: 048
     Dates: start: 20040616, end: 20040616
  11. LASIX [Concomitant]
     Route: 048
     Dates: start: 20040613, end: 20040614
  12. LASIX [Concomitant]
     Route: 048
     Dates: start: 20040615, end: 20040615
  13. HEPARIN SODIUM [Suspect]
     Indication: CEREBRAL INFARCTION
     Route: 041
     Dates: start: 20040614
  14. ACINON [Concomitant]
     Route: 065
     Dates: start: 20040613, end: 20040613
  15. LACTEC [Concomitant]
     Route: 065
     Dates: start: 20040613, end: 20040613
  16. ONON [Concomitant]
     Route: 048
     Dates: start: 20040613, end: 20040613
  17. THEO-DUR [Concomitant]
     Route: 048
     Dates: start: 20040613, end: 20040613
  18. NEOLAMIN [Concomitant]
     Route: 065
     Dates: start: 20040613, end: 20040616
  19. DIOVAN [Concomitant]
     Route: 048
     Dates: start: 20040613, end: 20040613
  20. WARFARIN [Concomitant]
     Route: 065
     Dates: start: 20040613, end: 20040613
  21. AMOBAN [Concomitant]
     Route: 048
     Dates: start: 20040613, end: 20040613

REACTIONS (7)
  - ALANINE AMINOTRANSFERASE INCREASED [None]
  - ASPARTATE AMINOTRANSFERASE INCREASED [None]
  - CARDIAC FAILURE [None]
  - CONDITION AGGRAVATED [None]
  - HEPATIC FUNCTION ABNORMAL [None]
  - LIVER DISORDER [None]
  - PNEUMONIA [None]
